FAERS Safety Report 6550723-3 (Version None)
Quarter: 2010Q1

REPORT INFORMATION
  Report Type: 
  Country: None (occurrence: None)
  Receive Date: 20100125
  Receipt Date: 20100111
  Transmission Date: 20100710
  Serious: Yes (Hospitalization, Other)
  Sender: FDA-Public Use
  Company Number: PHHY2010BR01520

PATIENT
  Sex: Male
  Weight: 105 kg

DRUGS (4)
  1. DIOVAN AMLO FIX [Suspect]
     Indication: HYPERTENSION
     Dosage: 1 TABLET DAILY
     Route: 048
     Dates: start: 20090701
  2. ENALAPRIL MALEATE [Concomitant]
  3. TESTOSTERONE UNDECANOATE [Concomitant]
     Dosage: 1 DF, Q3MO
     Route: 030
     Dates: start: 20080101
  4. MAREVAN [Concomitant]
     Dosage: 1 TABLET ON FIRST DAY, 0.5 TABLET ON SECOND AND THIRD DAY

REACTIONS (6)
  - AORTIC STENOSIS [None]
  - AORTIC SURGERY [None]
  - ARTERIAL CATHETERISATION [None]
  - BLOOD PRESSURE DECREASED [None]
  - BLOOD PRESSURE INCREASED [None]
  - FEELING ABNORMAL [None]
